FAERS Safety Report 10263009 (Version 2)
Quarter: 2014Q2

REPORT INFORMATION
  Report Type: Spontaneous
  Country: US (occurrence: US)
  Receive Date: 20140626
  Receipt Date: 20140626
  Transmission Date: 20141212
  Serious: No
  Sender: FDA-Public Use
  Company Number: US-MYLANLABS-2013S1026001

PATIENT
  Age: 41 Year
  Sex: Male

DRUGS (7)
  1. CLOZAPINE TABLETS [Suspect]
     Indication: SCHIZOPHRENIA
     Route: 048
     Dates: start: 2009
  2. CLOZAPINE TABLETS [Suspect]
     Indication: AGGRESSION
     Route: 048
     Dates: start: 2009
  3. CLOZAPINE TABLETS [Suspect]
     Indication: PSYCHOTIC DISORDER
     Route: 048
     Dates: start: 2009
  4. PROZAC [Concomitant]
     Route: 048
  5. BACLOFEN [Concomitant]
     Route: 048
  6. IBUPROFEN [Concomitant]
     Route: 048
  7. LIPITOR [Concomitant]
     Route: 048

REACTIONS (3)
  - White blood cell count increased [Not Recovered/Not Resolved]
  - Neutrophil count increased [Not Recovered/Not Resolved]
  - Mean platelet volume increased [Not Recovered/Not Resolved]
